FAERS Safety Report 21752178 (Version 1)
Quarter: 2022Q4

REPORT INFORMATION
  Report Type: Other
  Country: US (occurrence: None)
  Receive Date: 20221220
  Receipt Date: 20221220
  Transmission Date: 20230112
  Serious: Yes (Death, Hospitalization, Other)
  Sender: FDA-Public Use
  Company Number: US-ROCHE-3242599

PATIENT
  Age: 65 Year
  Sex: Female

DRUGS (31)
  1. OCREVUS [Suspect]
     Active Substance: OCRELIZUMAB
     Indication: Relapsing multiple sclerosis
     Dosage: THEN 600 MG EVERY 6 MONTHS, . DOT: 25-FEB-2022, 17-AUG-2021, 11-FEB-2021, 10-AUG-2020, 07-FEB-2020,
     Route: 065
     Dates: start: 20200207, end: 20220826
  2. OCREVUS [Suspect]
     Active Substance: OCRELIZUMAB
     Indication: Primary progressive multiple sclerosis
  3. PROVENTIL [Concomitant]
     Active Substance: ALBUTEROL
  4. ALPHA LIPOIC ACID [Concomitant]
     Active Substance: .ALPHA.-LIPOIC ACID
  5. ELIQUIS [Concomitant]
     Active Substance: APIXABAN
  6. ASPIRIN [Concomitant]
     Active Substance: ASPIRIN
  7. LIPITOR [Concomitant]
     Active Substance: ATORVASTATIN CALCIUM
  8. LIORESAL [Concomitant]
     Active Substance: BACLOFEN
  9. SYMBICORT [Concomitant]
     Active Substance: BUDESONIDE\FORMOTEROL FUMARATE DIHYDRATE
  10. VITAMIN D3 [Concomitant]
     Active Substance: CHOLECALCIFEROL
  11. CYMBALTA [Concomitant]
     Active Substance: DULOXETINE HYDROCHLORIDE
  12. EPIPEN [Concomitant]
     Active Substance: EPINEPHRINE
  13. ADVAIR HFA [Concomitant]
     Active Substance: FLUTICASONE PROPIONATE\SALMETEROL XINAFOATE
  14. LASIX [Concomitant]
     Active Substance: FUROSEMIDE
  15. NEURONTIN [Concomitant]
     Active Substance: GABAPENTIN
  16. GLUCAGON [Concomitant]
     Active Substance: GLUCAGON
  17. HUMALOG [Concomitant]
     Active Substance: INSULIN LISPRO
  18. SYNTHROID [Concomitant]
     Active Substance: LEVOTHYROXINE SODIUM
  19. PRINIVIL [Concomitant]
     Active Substance: LISINOPRIL
  20. MAGNESIUM [Concomitant]
     Active Substance: MAGNESIUM
  21. MELATONIN [Concomitant]
     Active Substance: MELATONIN
  22. TOPROL XL [Concomitant]
     Active Substance: METOPROLOL SUCCINATE
  23. SINGULAIR [Concomitant]
     Active Substance: MONTELUKAST SODIUM
  24. NARCAN [Concomitant]
     Active Substance: NALOXONE HYDROCHLORIDE
  25. MACROBID [Concomitant]
     Active Substance: NITROFURANTOIN\NITROFURANTOIN MONOHYDRATE
  26. OMEPRAZOLE [Concomitant]
     Active Substance: OMEPRAZOLE
  27. PROTONIX [Concomitant]
     Active Substance: PANTOPRAZOLE SODIUM
  28. SEROQUEL XR [Concomitant]
     Active Substance: QUETIAPINE FUMARATE
  29. CRESTOR [Concomitant]
     Active Substance: ROSUVASTATIN CALCIUM
  30. IMITREX [Concomitant]
     Active Substance: SUMATRIPTAN SUCCINATE
  31. TOPIRAMATE [Concomitant]
     Active Substance: TOPIRAMATE

REACTIONS (7)
  - Septic shock [Fatal]
  - Atrial fibrillation [Unknown]
  - Urosepsis [Unknown]
  - Bradycardia [Unknown]
  - Adrenal insufficiency [Unknown]
  - COVID-19 [Unknown]
  - Hypothermia [Unknown]

NARRATIVE: CASE EVENT DATE: 20220824
